FAERS Safety Report 13531123 (Version 4)
Quarter: 2017Q3

REPORT INFORMATION
  Report Type: Spontaneous
  Country: US (occurrence: US)
  Receive Date: 20170510
  Receipt Date: 20170914
  Transmission Date: 20171127
  Serious: Yes (Other)
  Sender: FDA-Public Use
  Company Number: PHEH2017US013924

PATIENT
  Age: 30 Year
  Sex: Female

DRUGS (2)
  1. ZOFRAN [Suspect]
     Active Substance: ONDANSETRON HYDROCHLORIDE
     Indication: VOMITING IN PREGNANCY
     Dosage: 4 MG, PRN
     Route: 065
     Dates: start: 200901, end: 200903
  2. ZOFRAN [Suspect]
     Active Substance: ONDANSETRON HYDROCHLORIDE
     Indication: PRODUCT USED FOR UNKNOWN INDICATION
     Route: 048

REACTIONS (10)
  - Maternal exposure during pregnancy [Unknown]
  - Premature delivery [Unknown]
  - Migraine [Unknown]
  - Anxiety [Unknown]
  - Headache [Unknown]
  - Injury [Unknown]
  - Pain [Unknown]
  - Product use issue [Unknown]
  - Nephrolithiasis [Unknown]
  - Emotional distress [Unknown]

NARRATIVE: CASE EVENT DATE: 20090817
